FAERS Safety Report 6658713-7 (Version None)
Quarter: 2010Q1

REPORT INFORMATION
  Report Type: 
  Country: None (occurrence: None)
  Receive Date: 20100330
  Receipt Date: 20100319
  Transmission Date: 20100710
  Serious: Yes (Other)
  Sender: FDA-Public Use
  Company Number: PHHY2010US17809

PATIENT
  Sex: Female

DRUGS (3)
  1. VALTURNA [Suspect]
     Dosage: 150/160 MG PER DAY
     Dates: start: 20100318
  2. NIACIN [Concomitant]
  3. FISH OIL [Concomitant]

REACTIONS (2)
  - BLOOD PRESSURE FLUCTUATION [None]
  - BLOOD PRESSURE INCREASED [None]
